FAERS Safety Report 7778278-6 (Version None)
Quarter: 2011Q3

REPORT INFORMATION
  Report Type: 
  Country: None (occurrence: None)
  Receive Date: 20110926
  Receipt Date: 20110922
  Transmission Date: 20111222
  Serious: Yes (Death)
  Sender: FDA-Public Use
  Company Number: US-BAYER-2011-089944

PATIENT
  Age: 46 Year
  Sex: Female

DRUGS (1)
  1. BEYAZ [Suspect]
     Indication: POLYCYSTIC OVARIES
     Dosage: UNK
     Route: 048
     Dates: start: 20110801, end: 20110901

REACTIONS (1)
  - THROMBOSIS [None]
